FAERS Safety Report 9625404 (Version 1)
Quarter: 2013Q4

REPORT INFORMATION
  Report Type: Report from Study
  Country: GB (occurrence: GB)
  Receive Date: 20131016
  Receipt Date: 20131016
  Transmission Date: 20140711
  Serious: Yes (Hospitalization)
  Sender: FDA-Public Use
  Company Number: GB-ROCHE-1286792

PATIENT
  Sex: Female
  Weight: 86 kg

DRUGS (3)
  1. RITUXIMAB [Suspect]
     Indication: RHEUMATOID ARTHRITIS
     Dosage: LAST DOSE PRIOR TO SAE ON 20/MAY/2009.
     Route: 065
     Dates: start: 20090506
  2. CYCLOSPORIN [Concomitant]
     Dosage: STOPPED
     Route: 065
  3. AZATHIOPRINE [Concomitant]

REACTIONS (2)
  - Placental insufficiency [Unknown]
  - Maternal exposure during pregnancy [Unknown]
